FAERS Safety Report 6655929-0 (Version None)
Quarter: 2010Q1

REPORT INFORMATION
  Report Type: 
  Country: None (occurrence: None)
  Receive Date: 20100329
  Receipt Date: 20100317
  Transmission Date: 20100710
  Serious: Yes (Other)
  Sender: FDA-Public Use
  Company Number: PHEH2010US02094

PATIENT
  Sex: Female
  Weight: 78 kg

DRUGS (3)
  1. SANDOSTATIN LAR [Suspect]
     Indication: ACROMEGALY
     Dosage: 20 MG EVERY 4 WEEKS
     Route: 030
     Dates: start: 20081104
  2. OCTREOTIDE ACETATE [Suspect]
     Dosage: UNK, TID
     Dates: start: 20080201
  3. OCTREOTIDE ACETATE [Suspect]
     Dosage: UNK, TID

REACTIONS (4)
  - INJURY [None]
  - SELF-MEDICATION [None]
  - SKELETAL INJURY [None]
  - SYRINGE ISSUE [None]
